FAERS Safety Report 4449359-X (Version None)
Quarter: 2004Q3

REPORT INFORMATION
  Report Type: 
  Country: None (occurrence: None)
  Receive Date: 20040913
  Receipt Date: 20040908
  Transmission Date: 20050211
  Serious: Yes (Death)
  Sender: FDA-Public Use
  Company Number: 04-09-1267

PATIENT
  Age: 60 Year
  Sex: Male

DRUGS (1)
  1. CLOZAPINE [Suspect]
     Indication: SCHIZOPHRENIA
     Dosage: 600-800MG QD ORAL
     Route: 048
     Dates: start: 19990301, end: 20040801

REACTIONS (1)
  - BRAIN NEOPLASM MALIGNANT [None]
